FAERS Safety Report 6486722-X (Version None)
Quarter: 2009Q4

REPORT INFORMATION
  Report Type: 
  Country: None (occurrence: None)
  Receive Date: 20091210
  Receipt Date: 20091204
  Transmission Date: 20100525
  Serious: Yes (Death, Life-Threatening, Other)
  Sender: FDA-Public Use
  Company Number: IT-BRISTOL-MYERS SQUIBB COMPANY-14633440

PATIENT
  Age: 70 Year
  Sex: Female

DRUGS (3)
  1. DASATINIB [Suspect]
     Indication: MULTIPLE MYELOMA
     Dosage: ALSO TAKEN ON 03JUN09 12MAY09-18MAY09; 20OCT09-ONG NUMBER OF COURSE - 6
     Route: 048
     Dates: start: 20090512
  2. MELPHALAN [Suspect]
     Indication: MULTIPLE MYELOMA
     Dosage: 12MAY09-15MAY09; 20OCT09-23OCT09 NUMBER OF COURSE - 6
     Route: 048
     Dates: start: 20090512, end: 20091023
  3. PREDNISONE [Suspect]
     Indication: MULTIPLE MYELOMA
     Dosage: 12MAY09-18MAY09; 20OCT09-23OCT09
     Route: 048
     Dates: start: 20090512, end: 20091023

REACTIONS (2)
  - DYSPNOEA [None]
  - HYPERTENSION [None]
